FAERS Safety Report 25791538 (Version 1)
Quarter: 2025Q3

REPORT INFORMATION
  Report Type: Spontaneous
  Country: US (occurrence: US)
  Receive Date: 20250911
  Receipt Date: 20250911
  Transmission Date: 20251020
  Serious: Yes (Death, Hospitalization, Other)
  Sender: B. BRAUN MEDICAL INC.
  Company Number: US-BBM-US-BBM-202503472

PATIENT
  Age: 41 Year
  Sex: Female

DRUGS (5)
  1. SALINE [Suspect]
     Active Substance: SODIUM CHLORIDE
     Indication: Hyponatraemia
  2. LACTATED RINGERS SOLUTION [Suspect]
     Active Substance: CALCIUM CHLORIDE\POTASSIUM CHLORIDE\SODIUM CHLORIDE\SODIUM LACTATE
  3. THIAMINE [Concomitant]
     Active Substance: THIAMINE
  4. LORAZEPAM [Concomitant]
     Active Substance: LORAZEPAM
  5. LACTULOSE [Concomitant]
     Active Substance: LACTULOSE

REACTIONS (1)
  - Osmotic demyelination syndrome [Fatal]
